FAERS Safety Report 20951927 (Version 2)
Quarter: 2022Q2

REPORT INFORMATION
  Report Type: Report from Study
  Country: SG (occurrence: SG)
  Receive Date: 20220613
  Receipt Date: 20220615
  Transmission Date: 20220721
  Serious: Yes (Hospitalization)
  Sender: FDA-Public Use
  Company Number: SG-NOVARTISPH-NVSC2022SG129861

PATIENT
  Age: 2 Year
  Sex: Male
  Weight: 8.5 kg

DRUGS (5)
  1. SACUBITRIL\VALSARTAN [Suspect]
     Active Substance: SACUBITRIL\VALSARTAN
     Indication: Cardiac failure
     Dosage: 1.6 MG/KG, BID
     Route: 048
     Dates: start: 20210727
  2. SACUBITRIL\VALSARTAN [Suspect]
     Active Substance: SACUBITRIL\VALSARTAN
     Indication: Left ventricular dysfunction
  3. FUROSEMIDE [Concomitant]
     Active Substance: FUROSEMIDE
     Indication: Therapy change
     Dosage: UNK
     Route: 065
     Dates: start: 20220328
  4. SPIRONOLACTONE [Concomitant]
     Active Substance: SPIRONOLACTONE
     Indication: Therapy change
     Dosage: UNK
     Route: 065
     Dates: start: 20220326
  5. CARVEDILOL [Concomitant]
     Active Substance: CARVEDILOL
     Indication: Therapy change
     Dosage: UNK
     Route: 065
     Dates: start: 20210914

REACTIONS (1)
  - Lower respiratory tract infection [Recovering/Resolving]

NARRATIVE: CASE EVENT DATE: 20220601
